FAERS Safety Report 9831357 (Version 4)
Quarter: 2014Q2

REPORT INFORMATION
  Report Type: Report from Study
  Country: GB (occurrence: GB)
  Receive Date: 20140121
  Receipt Date: 20140527
  Transmission Date: 20141212
  Serious: Yes (Hospitalization)
  Sender: FDA-Public Use
  Company Number: GB-ROCHE-1335916

PATIENT
  Age: 93 Year
  Sex: Female

DRUGS (5)
  1. RANIBIZUMAB [Suspect]
     Indication: AGE-RELATED MACULAR DEGENERATION
     Dosage: LAST DOSE OF RANIBIZUMAB ON 09 JUL 2013
     Route: 050
     Dates: start: 20090213, end: 20130709
  2. PARACETAMOL [Concomitant]
     Indication: ARTHRITIS
     Route: 065
     Dates: start: 20040611
  3. RAMIPRIL [Concomitant]
  4. ATENOL [Concomitant]
  5. BISOPROLOL [Concomitant]
     Route: 048
     Dates: start: 20130808

REACTIONS (9)
  - Subdural haematoma [Recovered/Resolved]
  - Fall [Unknown]
  - Presyncope [Recovering/Resolving]
  - Muscular weakness [Recovering/Resolving]
  - Facial paresis [Recovering/Resolving]
  - Agitation [Recovering/Resolving]
  - Haemorrhagic stroke [Recovering/Resolving]
  - Urinary tract infection [Recovered/Resolved]
  - Cerebral haemorrhage [Recovered/Resolved]
